FAERS Safety Report 13725843 (Version 1)
Quarter: 2017Q3

REPORT INFORMATION
  Report Type: Report from Study
  Country: CR (occurrence: CR)
  Receive Date: 20170706
  Receipt Date: 20170706
  Transmission Date: 20171127
  Serious: Yes (Other)
  Sender: FDA-Public Use
  Company Number: PHHY2016CR142408

PATIENT
  Age: 58 Year
  Sex: Female
  Weight: 81 kg

DRUGS (4)
  1. NATRILIX [Concomitant]
     Active Substance: INDAPAMIDE
     Indication: PRODUCT USED FOR UNKNOWN INDICATION
     Dosage: UNK
     Route: 065
  2. IRBESARTAN. [Suspect]
     Active Substance: IRBESARTAN
     Indication: HYPERTENSION
     Dosage: 300 MG, UNK
     Route: 065
  3. GALVUS MET [Suspect]
     Active Substance: METFORMIN HYDROCHLORIDE\VILDAGLIPTIN
     Indication: DIABETES MELLITUS
     Dosage: 1 DF (METFORMIN 1000MG/VILDAGLIPTIN 50MG), QD
     Route: 065
     Dates: start: 201501
  4. LANTUS [Concomitant]
     Active Substance: INSULIN GLARGINE
     Indication: PRODUCT USED FOR UNKNOWN INDICATION
     Dosage: 16 U, QD
     Route: 065

REACTIONS (10)
  - Vertigo [Unknown]
  - Fatigue [Unknown]
  - Blood glucose increased [Unknown]
  - Blood glucose abnormal [Unknown]
  - Mental disorder [Unknown]
  - Dry mouth [Unknown]
  - Ear disorder [Unknown]
  - Deafness [Unknown]
  - Memory impairment [Unknown]
  - Hypoacusis [Unknown]

NARRATIVE: CASE EVENT DATE: 201610
